FAERS Safety Report 18484407 (Version 1)
Quarter: 2020Q4

REPORT INFORMATION
  Report Type: Spontaneous
  Country: DE (occurrence: DE)
  Receive Date: 20201109
  Receipt Date: 20201109
  Transmission Date: 20210114
  Serious: Yes (Life-Threatening)
  Sender: FDA-Public Use
  Company Number: DE-CELLTRION INC.-2020DE030878

PATIENT

DRUGS (16)
  1. IFOSFAMIDE. [Suspect]
     Active Substance: IFOSFAMIDE
     Indication: CENTRAL NERVOUS SYSTEM LYMPHOMA
     Dosage: 800 MG/M2, EVERY 2 WEEKS (CYCLE 1-3, DAY 2-4)
     Route: 042
  2. CYTARABINE. [Suspect]
     Active Substance: CYTARABINE
     Dosage: 10 MG, EVERY 2 WEEKS (CYCLE 5, DAY 5)
  3. G-CSF [Suspect]
     Active Substance: GRANULOCYTE COLONY-STIMULATING FACTOR NOS
     Indication: PROPHYLAXIS
  4. PREDNISOLONE. [Suspect]
     Active Substance: PREDNISOLONE
     Dosage: 3 MG ICV, EVERY 2 WEEKS (CYCLE 5, DAY 2-4) WITH MTX
  5. METHOTREXATE. [Suspect]
     Active Substance: METHOTREXATE
     Dosage: 2.5 MILLIGRAM, EVERY 3 WEEKS (CYCLE 4 AND 6, DAY 3-5), WITH PREDNISOLONE
  6. CYTARABINE. [Suspect]
     Active Substance: CYTARABINE
     Indication: CENTRAL NERVOUS SYSTEM LYMPHOMA
     Dosage: 3000 MG/M2, EVERY 3 WEEKS (CYCLE 4 AND 6, DAY 1-2)
     Route: 042
  7. METHOTREXATE. [Suspect]
     Active Substance: METHOTREXATE
     Dosage: 4000 MG/M2, EVERY 2 WEEKS (CYCLE 5, DAY 1)
     Route: 042
  8. CYTARABINE. [Suspect]
     Active Substance: CYTARABINE
     Dosage: 10 MG, EVERY 3 WEEKS (CYCLE 4 AND 6, DAY 6)
  9. SODIUM 2-MERCAPTOETHANE SULFONATE [Suspect]
     Active Substance: MESNA
     Indication: PROPHYLAXIS
     Dosage: ADMINISTERED WITH IFOSFAMIDE AS PROTECTION
  10. PREDNISOLONE. [Suspect]
     Active Substance: PREDNISOLONE
     Indication: CENTRAL NERVOUS SYSTEM LYMPHOMA
     Dosage: 3 MG ICV, EVERY 3 WEEKS (CYCLE 4 AND 6,DAY 3-5) WITH MTX
  11. ACICLOVIR [Suspect]
     Active Substance: ACYCLOVIR
     Indication: PROPHYLAXIS
  12. METHOTREXATE. [Suspect]
     Active Substance: METHOTREXATE
     Indication: CENTRAL NERVOUS SYSTEM LYMPHOMA
     Dosage: 4000 MG/M2, EVERY 2 WEEKS (CYCLE 1-3, DAY 1)
     Route: 042
  13. SULFAMETHOXAZOLE;TRIMETHOPRIM [Suspect]
     Active Substance: SULFAMETHOXAZOLE\TRIMETHOPRIM
     Indication: PROPHYLAXIS
  14. IFOSFAMIDE. [Suspect]
     Active Substance: IFOSFAMIDE
     Dosage: 800 MG/M2, EVERY 2 WEEKS (CYCLE 5, DAY 2-4)
     Route: 042
  15. RITUXIMAB (UNKNOWN) [Suspect]
     Active Substance: RITUXIMAB
     Indication: CENTRAL NERVOUS SYSTEM LYMPHOMA
     Dosage: 375 MG/M2, EVERY 2 WEEKS (CYCLE 1-3, DAY 0)
     Route: 042
  16. METHOTREXATE. [Suspect]
     Active Substance: METHOTREXATE
     Dosage: 2.5 MILLIGRAM, EVERY 2 WEEKS (CYCLE 5, DAY 2-4), WITH PREDNISOLONE

REACTIONS (1)
  - Transaminases increased [Unknown]
